FAERS Safety Report 14228949 (Version 1)
Quarter: 2017Q4

REPORT INFORMATION
  Report Type: Spontaneous
  Country: US (occurrence: None)
  Receive Date: 20171124
  Receipt Date: 20171124
  Transmission Date: 20180321
  Serious: No
  Sender: FDA-Public Use
  Company Number: None

PATIENT
  Age: 49 Year
  Sex: Female

DRUGS (1)
  1. DUPIXENT [Suspect]
     Active Substance: DUPILUMAB
     Indication: PERICARDITIS
     Route: 058
     Dates: start: 20170731

REACTIONS (5)
  - Skin disorder [None]
  - Alopecia [None]
  - Dry skin [None]
  - Skin laxity [None]
  - Erythema [None]

NARRATIVE: CASE EVENT DATE: 20171020
